FAERS Safety Report 4373986-1 (Version None)
Quarter: 2004Q2

REPORT INFORMATION
  Report Type: 
  Country: None (occurrence: None)
  Receive Date: 20040609
  Receipt Date: 20040305
  Transmission Date: 20050107
  Serious: Yes (Death, Hospitalization, Other)
  Sender: FDA-Public Use
  Company Number: 200410760JP

PATIENT
  Age: 70 Year
  Sex: Male
  Weight: 65.5 kg

DRUGS (13)
  1. ARAVA [Suspect]
     Indication: RHEUMATOID ARTHRITIS
     Route: 048
     Dates: start: 20040109, end: 20040127
  2. INFREE [Concomitant]
     Indication: RHEUMATOID ARTHRITIS
     Route: 048
  3. PREDONINE [Concomitant]
     Indication: RHEUMATOID ARTHRITIS
     Route: 048
  4. CYTOTEC [Concomitant]
     Indication: PROPHYLAXIS AGAINST GASTROINTESTINAL ULCER
     Route: 048
  5. ANTACID TAB [Concomitant]
     Indication: GASTRITIS
     Route: 048
  6. CYANOCOBALAMIN [Concomitant]
     Indication: NEURALGIA
     Route: 048
  7. LIPITOR [Concomitant]
     Indication: HYPERLIPIDAEMIA
     Route: 048
  8. ONE-ALPHA [Concomitant]
     Indication: OSTEOPOROSIS
     Route: 048
  9. ACTONEL [Concomitant]
     Indication: OSTEOPOROSIS
     Route: 048
  10. METHOTREXATE [Concomitant]
     Indication: RHEUMATOID ARTHRITIS
     Route: 048
     Dates: start: 20030422, end: 20031219
  11. FOLIAMIN [Concomitant]
     Indication: FOLATE DEFICIENCY
  12. INTEBAN [Concomitant]
     Indication: RHEUMATOID ARTHRITIS
     Route: 048
  13. PARIET [Concomitant]
     Indication: REFLUX OESOPHAGITIS
     Dates: start: 20040123

REACTIONS (14)
  - C-REACTIVE PROTEIN INCREASED [None]
  - CATHETER SITE RELATED REACTION [None]
  - CHEST PAIN [None]
  - DRUG INEFFECTIVE [None]
  - DRUG LEVEL DECREASED [None]
  - HAEMORRHAGE [None]
  - HEPATIC FAILURE [None]
  - INTERSTITIAL LUNG DISEASE [None]
  - PLATELET COUNT DECREASED [None]
  - PLEURAL EFFUSION [None]
  - RESPIRATORY FAILURE [None]
  - RESTLESSNESS [None]
  - TRACHEAL INJURY [None]
  - TREATMENT NONCOMPLIANCE [None]
